FAERS Safety Report 13854575 (Version 1)
Quarter: 2017Q3

REPORT INFORMATION
  Report Type: Spontaneous
  Country: GB (occurrence: GB)
  Receive Date: 20170809
  Receipt Date: 20170809
  Transmission Date: 20171127
  Serious: Yes (Death, Hospitalization)
  Sender: FDA-Public Use
  Company Number: GB-IMPAX LABORATORIES, INC-2017-IPXL-02335

PATIENT
  Age: 27 Year
  Sex: Female

DRUGS (2)
  1. DANTROLENE SODIUM. [Suspect]
     Active Substance: DANTROLENE SODIUM
     Indication: MUSCLE RELAXANT THERAPY
     Dosage: UNK
     Route: 065
  2. 2,4 DINITROPHENOL [Concomitant]
     Indication: OVERDOSE

REACTIONS (1)
  - Cardiac arrest [Fatal]
